FAERS Safety Report 6809330-7 (Version None)
Quarter: 2010Q2

REPORT INFORMATION
  Report Type: 
  Country: None (occurrence: None)
  Receive Date: 20100630
  Receipt Date: 20100618
  Transmission Date: 20101027
  Serious: Yes (Other)
  Sender: FDA-Public Use
  Company Number: GB-ELI_LILLY_AND_COMPANY-GB201006005917

PATIENT
  Age: 44 Year
  Sex: Male

DRUGS (3)
  1. ZYPADHERA [Suspect]
     Dosage: 20 MG, OTHER (EVERY TWO WEEKS)
     Route: 065
     Dates: start: 20100312
  2. ZYPREXA [Suspect]
     Dosage: 40 MG, UNKNOWN
     Route: 048
  3. CLOZAPINE [Concomitant]
     Dosage: UNK, UNKNOWN
     Route: 065
     Dates: start: 20100101

REACTIONS (2)
  - OVERDOSE [None]
  - PSYCHOTIC DISORDER [None]
